FAERS Safety Report 7940612 (Version 3)
Quarter: 2020Q3

REPORT INFORMATION
  Report Type: Spontaneous
  Country: PL (occurrence: PL)
  Receive Date: 20110511
  Receipt Date: 20200722
  Transmission Date: 20201103
  Serious: Yes (Death, Hospitalization, Other)
  Sender: FDA-Public Use
  Company Number: PHHY2011PL38134

PATIENT
  Age: 2 Year
  Sex: Female

DRUGS (1)
  1. VALPROIC ACID. [Suspect]
     Active Substance: VALPROIC ACID
     Indication: EPILEPSY
     Dosage: UNK
     Route: 065

REACTIONS (14)
  - Hypermethioninaemia [Unknown]
  - Amino acid level increased [Unknown]
  - Epilepsy [Fatal]
  - Transferrin abnormal [Unknown]
  - Alpers disease [Fatal]
  - Psychomotor retardation [Fatal]
  - Gene mutation [Fatal]
  - Electroencephalogram abnormal [Fatal]
  - Therapeutic response decreased [Unknown]
  - Toxicity to various agents [Unknown]
  - Vomiting [Fatal]
  - Drug resistance [Fatal]
  - Hepatic failure [Fatal]
  - Hepatitis fulminant [Fatal]
